FAERS Safety Report 24343464 (Version 3)
Quarter: 2024Q3

REPORT INFORMATION
  Report Type: Spontaneous
  Country: US (occurrence: US)
  Receive Date: 20240920
  Receipt Date: 20240923
  Transmission Date: 20241016
  Serious: Yes (Other)
  Sender: NOVARTIS
  Company Number: US-002147023-NVSC2024US185855

PATIENT

DRUGS (1)
  1. KESIMPTA [Suspect]
     Active Substance: OFATUMUMAB
     Indication: Product used for unknown indication
     Dosage: UNK
     Route: 065

REACTIONS (7)
  - Multiple sclerosis relapse [Unknown]
  - Optic nerve disorder [Unknown]
  - Speech disorder [Unknown]
  - Device mechanical issue [Unknown]
  - Device delivery system issue [Unknown]
  - Balance disorder [Unknown]
  - Drug dose omission by device [Unknown]
